FAERS Safety Report 16697884 (Version 1)
Quarter: 2019Q3

REPORT INFORMATION
  Report Type: Spontaneous
  Country: US (occurrence: US)
  Receive Date: 20190626
  Receipt Date: 20190626
  Transmission Date: 20191004
  Serious: No
  Sender: FDA-Public Use
  Company Number: None

PATIENT
  Age: 51 Year
  Sex: Female

DRUGS (2)
  1. MYCOPHENOLATE MOFETIL 500MG TABLET [Suspect]
     Active Substance: MYCOPHENOLATE MOFETIL
     Indication: LIVER TRANSPLANT
     Dates: start: 20190522
  2. TACROLIMUS. [Concomitant]
     Active Substance: TACROLIMUS
     Dates: start: 20190522

REACTIONS (1)
  - Tremor [None]

NARRATIVE: CASE EVENT DATE: 20190522
